FAERS Safety Report 14223855 (Version 1)
Quarter: 2017Q4

REPORT INFORMATION
  Report Type: Spontaneous
  Country: FR (occurrence: FR)
  Receive Date: 20171125
  Receipt Date: 20171125
  Transmission Date: 20180321
  Serious: Yes (Other)
  Sender: FDA-Public Use
  Company Number: PHHY2017FR171650

PATIENT

DRUGS (1)
  1. GILENYA [Suspect]
     Active Substance: FINGOLIMOD HYDROCHLORIDE
     Indication: MULTIPLE SCLEROSIS
     Dosage: 0.5 MG, QD
     Route: 065
     Dates: start: 2011

REACTIONS (4)
  - Drug ineffective [Unknown]
  - Lymphocyte count decreased [Recovering/Resolving]
  - Multiple sclerosis relapse [Unknown]
  - Expanded disability status scale score increased [Unknown]
